FAERS Safety Report 11568593 (Version 5)
Quarter: 2016Q4

REPORT INFORMATION
  Report Type: Report from Study
  Country: None (occurrence: PR)
  Receive Date: 20150929
  Receipt Date: 20161031
  Transmission Date: 20170206
  Serious: Yes (Other)
  Sender: FDA-Public Use
  Company Number: PR-ABBVIE-15K-131-1469556-00

PATIENT
  Age: 60 Year
  Sex: Female
  Weight: 60.84 kg

DRUGS (9)
  1. AVAPRO [Concomitant]
     Active Substance: IRBESARTAN
     Indication: HYPERTENSION
     Route: 048
  2. HUMIRA [Suspect]
     Active Substance: ADALIMUMAB
     Route: 058
     Dates: end: 20160202
  3. NORVASC [Concomitant]
     Active Substance: AMLODIPINE BESYLATE
     Indication: HYPERTENSION
     Route: 048
  4. ASPIRIN. [Concomitant]
     Active Substance: ASPIRIN
     Indication: ANTICOAGULANT THERAPY
     Route: 048
  5. HUMIRA [Suspect]
     Active Substance: ADALIMUMAB
     Indication: PSORIATIC ARTHROPATHY
     Route: 058
     Dates: start: 20110126, end: 201508
  6. MOBIC [Concomitant]
     Active Substance: MELOXICAM
     Indication: MUSCLE RELAXANT THERAPY
     Route: 048
  7. NORMODYNE [Concomitant]
     Active Substance: LABETALOL HYDROCHLORIDE
     Indication: HYPERTENSION
     Route: 048
  8. LIPOFLAVONOID [Concomitant]
     Active Substance: UNSPECIFIED INGREDIENT
     Indication: EAR DISORDER
     Route: 048
     Dates: start: 201603
  9. MOBIC [Concomitant]
     Active Substance: MELOXICAM
     Indication: PAIN
     Route: 048

REACTIONS (4)
  - Cataract [Recovering/Resolving]
  - Exostosis [Recovering/Resolving]
  - Rotator cuff syndrome [Recovered/Resolved]
  - Psoriasis [Recovering/Resolving]

NARRATIVE: CASE EVENT DATE: 201408
